FAERS Safety Report 19467558 (Version 1)
Quarter: 2021Q2

REPORT INFORMATION
  Report Type: Spontaneous
  Country: US (occurrence: US)
  Receive Date: 20210628
  Receipt Date: 20210628
  Transmission Date: 20210717
  Serious: Yes (Other)
  Sender: FDA-Public Use
  Company Number: None

PATIENT
  Age: 84 Year
  Sex: Male

DRUGS (2)
  1. JAKAFI [Suspect]
     Active Substance: RUXOLITINIB
     Indication: MYELOPROLIFERATIVE NEOPLASM
     Route: 048
     Dates: start: 20201005, end: 20210628
  2. JAKAFI 15MG BID [Concomitant]
     Dates: start: 20201020, end: 20210628

REACTIONS (4)
  - Red blood cell count decreased [None]
  - Therapy cessation [None]
  - Drug ineffective [None]
  - White blood cell count decreased [None]
